FAERS Safety Report 6046311-8 (Version None)
Quarter: 2009Q1

REPORT INFORMATION
  Report Type: 
  Country: None (occurrence: None)
  Receive Date: 20090122
  Receipt Date: 20090108
  Transmission Date: 20090719
  Serious: Yes (Hospitalization, Other)
  Sender: FDA-Public Use
  Company Number: FR-ELI_LILLY_AND_COMPANY-FR200901000935

PATIENT
  Sex: Female

DRUGS (7)
  1. FORTEO [Suspect]
     Indication: OSTEOPOROTIC FRACTURE
     Dosage: 20 UG, UNK
     Route: 058
     Dates: start: 20070501, end: 20070101
  2. FLUTICASONE PROPIONATE [Concomitant]
     Dosage: 500 MG, 2/D
  3. FORADIL [Concomitant]
     Dosage: 2 D/F, 2/D
  4. ACETAMINOPHEN [Concomitant]
     Dosage: 5 MG, DAILY (1/D)
  5. CRESTOR [Concomitant]
     Dosage: 5 MG, DAILY (1/D)
  6. NEXIUM [Concomitant]
     Dosage: 40 MG, UNK
  7. SPASFON [Concomitant]
     Dosage: UNK, AS NEEDED

REACTIONS (5)
  - ASTHMA [None]
  - BLOOD CORTICOSTERONE ABNORMAL [None]
  - HOSPITALISATION [None]
  - SYSTEMIC INFLAMMATORY RESPONSE SYNDROME [None]
  - VERTEBROPLASTY [None]
